FAERS Safety Report 9146597 (Version 1)
Quarter: 2013Q1

REPORT INFORMATION
  Report Type: Spontaneous
  Country: FR (occurrence: FR)
  Receive Date: 20130307
  Receipt Date: 20130307
  Transmission Date: 20140127
  Serious: Yes (Life-Threatening, Hospitalization)
  Sender: FDA-Public Use
  Company Number: FR-JNJFOC-20130216885

PATIENT
  Age: 60 Year
  Sex: Female

DRUGS (9)
  1. XARELTO [Suspect]
     Indication: ATRIAL FIBRILLATION
     Route: 048
     Dates: start: 20121105, end: 20121215
  2. XARELTO [Suspect]
     Indication: CEREBROVASCULAR ACCIDENT PROPHYLAXIS
     Route: 048
     Dates: start: 20121105, end: 20121215
  3. PREVISCAN (FLUINDIONE) [Concomitant]
     Dosage: ACCORDING TO INR
     Route: 065
     Dates: end: 20121105
  4. AVLOCARDYL [Concomitant]
     Route: 065
  5. CORDARONE [Concomitant]
     Dosage: 200
     Route: 065
     Dates: end: 20121105
  6. CRESTOR [Concomitant]
     Route: 065
     Dates: start: 20121105
  7. FLECAINE [Concomitant]
     Dosage: 100
     Route: 065
  8. TAHOR [Concomitant]
     Route: 065
     Dates: end: 20121105
  9. SEVIKAR [Concomitant]
     Dosage: 20/5
     Route: 065
     Dates: end: 20121119

REACTIONS (3)
  - Renal haematoma [Not Recovered/Not Resolved]
  - Renal haemorrhage [Not Recovered/Not Resolved]
  - Shock haemorrhagic [Not Recovered/Not Resolved]
